FAERS Safety Report 8911902 (Version 1)
Quarter: 2012Q4

REPORT INFORMATION
  Report Type: Report from Study
  Country: CA (occurrence: CA)
  Receive Date: 20121116
  Receipt Date: 20121116
  Transmission Date: 20130627
  Serious: Yes (Other)
  Sender: FDA-Public Use
  Company Number: CA-JNJFOC-20121104952

PATIENT
  Age: 53 Year
  Sex: Female
  Weight: 86.3 kg

DRUGS (10)
  1. REMICADE [Suspect]
     Indication: COLITIS ULCERATIVE
     Dosage: 1st loading dose
     Route: 042
     Dates: start: 20121022
  2. REMICADE [Suspect]
     Indication: COLITIS ULCERATIVE
     Dosage: 2nd loading dose
     Route: 042
     Dates: start: 20121107
  3. PREDNISONE [Concomitant]
     Route: 065
  4. IMURAN [Concomitant]
     Route: 065
  5. ACTONEL [Concomitant]
     Route: 065
  6. CELEBREX [Concomitant]
     Route: 065
  7. ACCUTANE [Concomitant]
     Route: 065
  8. ELOCON [Concomitant]
     Route: 065
  9. ASA [Concomitant]
     Route: 065
  10. VITAMIN [Concomitant]
     Route: 065

REACTIONS (3)
  - Paraesthesia [Unknown]
  - Carpal tunnel syndrome [Unknown]
  - Infusion related reaction [Unknown]
